FAERS Safety Report 20596392 (Version 3)
Quarter: 2022Q2

REPORT INFORMATION
  Report Type: Spontaneous
  Country: US (occurrence: US)
  Receive Date: 20220315
  Receipt Date: 20220424
  Transmission Date: 20220721
  Serious: Yes (Hospitalization)
  Sender: FDA-Public Use
  Company Number: US-SA-SAC20220215000757

PATIENT
  Age: 32 Year
  Sex: Male

DRUGS (22)
  1. DUPIXENT [Suspect]
     Active Substance: DUPILUMAB
     Indication: Dermatitis atopic
     Dosage: 300 MG, QOW
     Route: 058
     Dates: start: 202202
  2. VITAMIN D NOS [Concomitant]
     Active Substance: VITAMIN D NOS
  3. ARIPIPRAZOLE [Concomitant]
     Active Substance: ARIPIPRAZOLE
  4. ATORVASTATIN [Concomitant]
     Active Substance: ATORVASTATIN
  5. ESCITALOPRAM [Concomitant]
     Active Substance: ESCITALOPRAM OXALATE
  6. GABAPENTIN [Concomitant]
     Active Substance: GABAPENTIN
  7. HYOSCYAMINE [Concomitant]
     Active Substance: HYOSCYAMINE
     Dosage: STRENGTH 0.375
  8. LORATADINE [Concomitant]
     Active Substance: LORATADINE
  9. MONTELUKAST SODIUM [Concomitant]
     Active Substance: MONTELUKAST SODIUM
  10. OLOPATADINE [Concomitant]
     Active Substance: OLOPATADINE
  11. HYDROXYZINE HYDROCHLORIDE [Concomitant]
     Active Substance: HYDROXYZINE HYDROCHLORIDE
  12. PANTOPRAZOLE [Concomitant]
     Active Substance: PANTOPRAZOLE
  13. PROAIR HFA [Concomitant]
     Active Substance: ALBUTEROL SULFATE
  14. PROLASTIN-C [Concomitant]
     Active Substance: .ALPHA.1-PROTEINASE INHIBITOR HUMAN
  15. ROPINIROLE [Concomitant]
     Active Substance: ROPINIROLE
  16. SUMATRIPTAN [Concomitant]
     Active Substance: SUMATRIPTAN
  17. SYMBICORT [Concomitant]
     Active Substance: BUDESONIDE\FORMOTEROL FUMARATE DIHYDRATE
     Dosage: AER 160-4.5
  18. VALACYCLOVIR [Concomitant]
     Active Substance: VALACYCLOVIR HYDROCHLORIDE
     Dosage: UNK
  19. BUPROPION HYDROCHLORIDE [Concomitant]
     Active Substance: BUPROPION HYDROCHLORIDE
  20. SPIRIVA [Concomitant]
     Active Substance: TIOTROPIUM BROMIDE MONOHYDRATE
  21. CHOLECALCIFEROL [Concomitant]
     Active Substance: CHOLECALCIFEROL
  22. ARIPIPRAZOLE [Concomitant]
     Active Substance: ARIPIPRAZOLE

REACTIONS (3)
  - Haemorrhoid infection [Not Recovered/Not Resolved]
  - Abscess [Not Recovered/Not Resolved]
  - Hospitalisation [Not Recovered/Not Resolved]

NARRATIVE: CASE EVENT DATE: 20220209
